FAERS Safety Report 8929242 (Version 1)
Quarter: 2012Q4

REPORT INFORMATION
  Report Type: 
  Country: JP (occurrence: JP)
  Receive Date: 20121127
  Receipt Date: 20121127
  Transmission Date: 20130627
  Serious: Yes (Hospitalization)
  Sender: FDA-Public Use
  Company Number: JP-ABBOTT-12P-087-1003508-00

PATIENT
  Age: 3 Year
  Sex: Male
  Weight: 15 kg

DRUGS (4)
  1. HOKUNALIN TAPE [Suspect]
     Indication: ASTHMA
     Route: 062
     Dates: start: 20121030, end: 20121030
  2. PRANLUKAST [Concomitant]
     Indication: ASTHMA
     Route: 048
     Dates: start: 2012
  3. MEQUITAZINE [Concomitant]
     Indication: ASTHMA
     Route: 048
     Dates: start: 2012
  4. L-CARBOCYSTEINE [Concomitant]
     Indication: ASTHMA
     Route: 048
     Dates: start: 2012

REACTIONS (4)
  - Urticaria [Recovering/Resolving]
  - Wheezing [Recovering/Resolving]
  - Erythema [Unknown]
  - Anaphylactic reaction [Recovered/Resolved]
